FAERS Safety Report 11072080 (Version 1)
Quarter: 2015Q2

REPORT INFORMATION
  Report Type: Spontaneous
  Country: None (occurrence: None)
  Receive Date: 20150427
  Receipt Date: 20150427
  Transmission Date: 20150821
  Serious: Yes (Hospitalization)
  Sender: FDA-Public Use
  Company Number: None

PATIENT
  Age: 46 Year
  Sex: Female
  Weight: 86.4 kg

DRUGS (5)
  1. ARMOUR THYROID [Concomitant]
     Active Substance: THYROID, PORCINE\THYROID, UNSPECIFIED
  2. MEDROL [Suspect]
     Active Substance: METHYLPREDNISOLONE
     Indication: LOCAL SWELLING
     Dosage: STANDARD TITRATION
     Route: 048
     Dates: start: 20150420, end: 20150423
  3. LISINOPRIL. [Concomitant]
     Active Substance: LISINOPRIL
  4. XANAX [Concomitant]
     Active Substance: ALPRAZOLAM
  5. CYCLOBENZAPRINE [Concomitant]
     Active Substance: CYCLOBENZAPRINE

REACTIONS (2)
  - Substance-induced psychotic disorder [None]
  - Asthenia [None]

NARRATIVE: CASE EVENT DATE: 20150423
